FAERS Safety Report 13344969 (Version 1)
Quarter: 2017Q1

REPORT INFORMATION
  Report Type: Spontaneous
  Country: US (occurrence: US)
  Receive Date: 20170317
  Receipt Date: 20170317
  Transmission Date: 20170428
  Serious: No
  Sender: FDA-Public Use
  Company Number: US-PFIZER INC-2017106129

PATIENT
  Age: 28 Year
  Sex: Female
  Weight: 75.3 kg

DRUGS (27)
  1. XALKORI [Suspect]
     Active Substance: CRIZOTINIB
     Indication: MALIGNANT MELANOMA
     Dosage: 250 MG, 2X/DAY (ONE IN MORNING AND ONE BEFORE)
     Route: 048
     Dates: start: 20170110
  2. ALLEGRA [Concomitant]
     Active Substance: FEXOFENADINE HYDROCHLORIDE
     Indication: SINUSITIS
  3. LANSOPRAZOLE. [Concomitant]
     Active Substance: LANSOPRAZOLE
     Indication: GASTROOESOPHAGEAL REFLUX DISEASE
     Dosage: 30 MG, 1X/DAY (TAKE 15 MINUTES BEFORE SHE EATS BREAKFAST)
     Route: 048
     Dates: start: 2016
  4. LEVORA [Concomitant]
     Active Substance: ETHINYL ESTRADIOL\LEVONORGESTREL
     Indication: MENSTRUAL CYCLE MANAGEMENT
     Dosage: UNK, CYCLIC [ETHINYLESTRADIOL: 0.15 MG, LEVONORGESTREL: 30 MG], ONCE A DAY FOR A 28 CYCLE
     Route: 048
  5. PAXIL [Concomitant]
     Active Substance: PAROXETINE HYDROCHLORIDE
     Indication: ANXIETY
     Dosage: 20 MG, UNK
     Route: 048
     Dates: start: 2015
  6. XANAX [Concomitant]
     Active Substance: ALPRAZOLAM
     Indication: ANXIETY
     Dosage: 0.5 MG, 2X/DAY (IN THE MORNING, ANOTHER IN THE AFTERNOON ABOUT 6 HOURS LATER)
     Route: 048
     Dates: start: 2016
  7. ALBUTEROL. [Concomitant]
     Active Substance: ALBUTEROL
     Indication: DYSPNOEA
     Dosage: 2.5 MG, UNK
     Route: 055
     Dates: start: 2016
  8. AYR SALINE [Concomitant]
     Indication: NASAL DRYNESS
     Dosage: UNK, DAILY (APPLY TO NOSTRILS, EVERYDAY WITH QTIP)
     Route: 045
     Dates: start: 2015
  9. BOOST [Concomitant]
     Active Substance: DIETARY SUPPLEMENT
     Indication: SUPPLEMENTATION THERAPY
     Dosage: UNK (LIQUID; TWO BOTTLES A DAY)
     Route: 048
     Dates: start: 2016
  10. LEVOTHYROXINE. [Concomitant]
     Active Substance: LEVOTHYROXINE
     Indication: THYROID DISORDER
     Dosage: UNK (HALF A TABLET ON SUN AND ONE TABLET MON TO SAT)
     Route: 048
     Dates: start: 2016
  11. VERAPAMIL [Concomitant]
     Active Substance: VERAPAMIL HYDROCHLORIDE
     Dosage: 180 MG, UNK
  12. AYR [Concomitant]
     Indication: NASAL DRYNESS
     Dosage: UNK, DAILY (2 PUFFS IN EACH NOSTRIL, DAILY)
     Route: 045
     Dates: start: 2015
  13. COLGATE PEROXYL [Concomitant]
     Indication: PAIN
     Dosage: UNK (FILL TO LINE ON CAP AND SWISH AROUND IN MOUTH)
     Dates: start: 2017
  14. OXYCODONE [Concomitant]
     Active Substance: OXYCODONE
     Indication: PAIN
     Dosage: 20 MG, 3X/DAY
     Route: 048
     Dates: start: 2016
  15. MECLIZINE [Concomitant]
     Active Substance: MECLIZINE HYDROCHLORIDE
     Indication: DIZZINESS
     Dosage: 25 MG, AS NEEDED
     Route: 048
     Dates: start: 2016
  16. SUMATRIPTAN. [Concomitant]
     Active Substance: SUMATRIPTAN
     Indication: MIGRAINE
     Dosage: UNK
     Route: 048
     Dates: start: 2015
  17. VERAPAMIL [Concomitant]
     Active Substance: VERAPAMIL HYDROCHLORIDE
     Indication: MIGRAINE
     Dosage: 120 MG, 1X/DAY (ONE IN THE MORNING)
     Route: 048
  18. EPSOM SALT [Concomitant]
     Active Substance: MAGNESIUM SULFATE
     Indication: PERIPHERAL SWELLING
     Dosage: UNK, AS NEEDED (2 CUPS WITH A FULL BATH TUB)
     Dates: start: 201701
  19. ALBUTEROL. [Concomitant]
     Active Substance: ALBUTEROL
     Indication: ASTHMA
  20. PROVENTIL [Concomitant]
     Active Substance: ALBUTEROL
     Indication: ASTHMA
     Dosage: UNK, AS NEEDED (2 PUFFS AS NEEDED)
     Route: 055
     Dates: start: 2015
  21. ALLEGRA [Concomitant]
     Active Substance: FEXOFENADINE HYDROCHLORIDE
     Indication: HYPERSENSITIVITY
     Dosage: 180 MG, 1X/DAY
     Route: 048
     Dates: start: 2016
  22. MORPHINE [Concomitant]
     Active Substance: MORPHINE
     Indication: PAIN
     Dosage: 60 MG, UNK
     Route: 048
     Dates: start: 2016
  23. AYR SALINE [Concomitant]
     Indication: EPISTAXIS
  24. ADDERALL [Concomitant]
     Active Substance: AMPHETAMINE ASPARTATE\AMPHETAMINE SULFATE\DEXTROAMPHETAMINE SACCHARATE\DEXTROAMPHETAMINE SULFATE
     Indication: ATTENTION DEFICIT/HYPERACTIVITY DISORDER
     Dosage: 20 MG, 1X/DAY
     Route: 048
     Dates: start: 201702
  25. MIRALAX [Concomitant]
     Active Substance: POLYETHYLENE GLYCOL 3350
     Indication: CONSTIPATION
     Dosage: 17 MG, 1X/DAY
     Route: 048
     Dates: start: 2016
  26. XANAX [Concomitant]
     Active Substance: ALPRAZOLAM
     Indication: PANIC ATTACK
     Dosage: 2 MG, 1X/DAY (AT BEDTIME)
     Route: 048
  27. AYR [Concomitant]
     Indication: EPISTAXIS

REACTIONS (3)
  - Pain [Recovering/Resolving]
  - Headache [Recovering/Resolving]
  - Peripheral swelling [Recovering/Resolving]

NARRATIVE: CASE EVENT DATE: 201701
